FAERS Safety Report 4390410-3 (Version None)
Quarter: 2004Q2

REPORT INFORMATION
  Report Type: 
  Country: None (occurrence: None)
  Receive Date: 20040630
  Receipt Date: 20040615
  Transmission Date: 20050107
  Serious: Yes (Hospitalization)
  Sender: FDA-Public Use
  Company Number: 2004-BP-04731BR

PATIENT
  Age: 70 Year

DRUGS (1)
  1. SPIRIVA [Suspect]
     Indication: CHRONIC OBSTRUCTIVE AIRWAYS DISEASE
     Dosage: (18 MCG, KAI, OAD)
     Route: 055

REACTIONS (2)
  - CARDIAC FAILURE [None]
  - DIABETES MELLITUS INADEQUATE CONTROL [None]
